FAERS Safety Report 21401558 (Version 1)
Quarter: 2022Q4

REPORT INFORMATION
  Report Type: Other
  Country: None (occurrence: US)
  Receive Date: 20221003
  Receipt Date: 20221003
  Transmission Date: 20230113
  Serious: Yes (Hospitalization, Other)
  Sender: FDA-Public Use
  Company Number: US-Zhejiang Yongtai pharmaceuticals Co..,Ltd.-2133400

PATIENT
  Age: 76 Year
  Sex: Female

DRUGS (1)
  1. DOXYCYCLINE HYCLATE [Suspect]
     Active Substance: DOXYCYCLINE HYCLATE
     Indication: Cellulitis
     Route: 065

REACTIONS (1)
  - Diabetes insipidus [Unknown]
